FAERS Safety Report 7505687-2 (Version None)
Quarter: 2011Q2

REPORT INFORMATION
  Report Type: 
  Country: None (occurrence: None)
  Receive Date: 20110404
  Receipt Date: 20100927
  Transmission Date: 20111010
  Serious: Yes (Other)
  Sender: FDA-Public Use
  Company Number: 011280

PATIENT

DRUGS (9)
  1. FLUDARABINE (FLUDARABINE) [Concomitant]
  2. CYCLOPHOSPHAMIDE [Concomitant]
  3. TACROLIMUS [Concomitant]
  4. ANTI-THYMOCYTE GLOBULIN NOS [Concomitant]
  5. MELPHALAN HYDROCHLORIDE [Concomitant]
  6. CLOFARABINE [Concomitant]
  7. BUSULFEX [Suspect]
     Indication: BONE MARROW DISORDER
     Dosage: 130 MG/M2, DAILY DOSE, INTRAVENOUS, 3.2 MG/KG, DAILY DOSE, INTRAVENOUS
     Route: 042
  8. BUSULFEX [Suspect]
     Indication: BONE MARROW DISORDER
     Dosage: 130 MG/M2, DAILY DOSE, INTRAVENOUS, 3.2 MG/KG, DAILY DOSE, INTRAVENOUS
     Route: 042
  9. METHOTREXATE [Concomitant]

REACTIONS (3)
  - BK VIRUS INFECTION [None]
  - ACUTE GRAFT VERSUS HOST DISEASE [None]
  - CYSTITIS HAEMORRHAGIC [None]
